FAERS Safety Report 6552244-0 (Version None)
Quarter: 2010Q1

REPORT INFORMATION
  Report Type: 
  Country: None (occurrence: None)
  Receive Date: 20100121
  Receipt Date: 20100106
  Transmission Date: 20100710
  Serious: Yes (Hospitalization)
  Sender: FDA-Public Use
  Company Number: 20100005

PATIENT
  Age: 55 Year
  Sex: Female

DRUGS (3)
  1. METHYLENE BLUE INJECTION, U5P (0301-10) 1% [Suspect]
     Indication: PARATHYROIDECTOMY
     Dosage: 7.5 MG/KG IN 100 ML
  2. CITALOPRAM HYDROBROMIDE [Suspect]
  3. BUPROPION [Concomitant]

REACTIONS (6)
  - BLINDNESS CORTICAL [None]
  - DRUG INTERACTION [None]
  - ENCEPHALOPATHY [None]
  - EYE MOVEMENT DISORDER [None]
  - SEROTONIN SYNDROME [None]
  - VISION BLURRED [None]
